FAERS Safety Report 23776892 (Version 2)
Quarter: 2024Q3

REPORT INFORMATION
  Report Type: Spontaneous
  Country: DE (occurrence: DE)
  Receive Date: 20240424
  Receipt Date: 20240709
  Transmission Date: 20241017
  Serious: Yes (Other)
  Sender: ACCORD
  Company Number: None

PATIENT
  Sex: Female

DRUGS (2)
  1. METHOTREXATE [Suspect]
     Active Substance: METHOTREXATE
     Indication: Psoriasis
     Dosage: 10 MG, WEEKLY
  2. INEBILIZUMAB [Suspect]
     Active Substance: INEBILIZUMAB
     Indication: Neuromyelitis optica spectrum disorder
     Dosage: SOLUTION FOR INTRAVENOUS INFUSION, 300 MG, EVERY 6 MONTHS
     Dates: start: 202211, end: 202301

REACTIONS (3)
  - Lymphopenia [Recovered/Resolved]
  - CD4 lymphocytes decreased [Recovered/Resolved]
  - T-lymphocyte count decreased [Recovered/Resolved]
